FAERS Safety Report 6146284-3 (Version None)
Quarter: 2009Q2

REPORT INFORMATION
  Report Type: 
  Country: None (occurrence: None)
  Receive Date: 20090403
  Receipt Date: 20090403
  Transmission Date: 20091009
  Serious: Yes (Hospitalization)
  Sender: FDA-Public Use
  Company Number: None

PATIENT
  Sex: Female
  Weight: 64.55 kg

DRUGS (2)
  1. CARBOPLATIN [Suspect]
     Dosage: 616 MG
  2. TAXOL [Concomitant]
     Dosage: 282 MG

REACTIONS (5)
  - ASTHENIA [None]
  - BODY TEMPERATURE INCREASED [None]
  - CONSTIPATION [None]
  - DEHYDRATION [None]
  - SINUS TACHYCARDIA [None]
